FAERS Safety Report 8551081 (Version 3)
Quarter: 2013Q2

REPORT INFORMATION
  Report Type: Spontaneous
  Country: US (occurrence: US)
  Receive Date: 20120508
  Receipt Date: 20130423
  Transmission Date: 20140414
  Serious: Yes (Hospitalization)
  Sender: FDA-Public Use
  Company Number: US-BAYER-2012-040457

PATIENT
  Age: 35 Year
  Sex: Female

DRUGS (4)
  1. YAZ [Suspect]
     Dosage: UNK
     Dates: start: 2010
  2. GIANVI [Suspect]
     Dosage: UNK
     Dates: start: 2010, end: 2010
  3. CETIRIZINE [Concomitant]
     Dosage: 1 TABLET AS NEEDED
  4. TOPROL [Concomitant]

REACTIONS (1)
  - Pulmonary embolism [None]
